FAERS Safety Report 10235801 (Version 1)
Quarter: 2014Q2

REPORT INFORMATION
  Report Type: Spontaneous
  Country: US (occurrence: None)
  Receive Date: 20140612
  Receipt Date: 20140612
  Transmission Date: 20141212
  Serious: No
  Sender: FDA-Public Use
  Company Number: None

PATIENT
  Age: 62 Year
  Sex: Female
  Weight: 61.3 kg

DRUGS (2)
  1. CYTARABINE [Suspect]
     Dates: end: 20140607
  2. DAUNORUBICIN [Suspect]
     Dates: end: 20140603

REACTIONS (2)
  - Pyrexia [None]
  - Blood pressure decreased [None]
